FAERS Safety Report 10511781 (Version 1)
Quarter: 2014Q3

REPORT INFORMATION
  Report Type: Spontaneous
  Country: US (occurrence: None)
  Receive Date: 20140926
  Receipt Date: 20140926
  Transmission Date: 20150326
  Serious: No
  Sender: FDA-Public Use
  Company Number: 1000067971

PATIENT
  Age: 74 Year
  Sex: Female

DRUGS (3)
  1. METFORMIN [Concomitant]
     Active Substance: METFORMIN HYDROCHLORIDE
  2. LINZESS [Suspect]
     Active Substance: LINACLOTIDE
     Indication: ABDOMINAL HERNIA
     Route: 048
     Dates: start: 20140604
  3. LOSARTAN [Concomitant]
     Active Substance: LOSARTAN

REACTIONS (2)
  - Dizziness [None]
  - Off label use [None]

NARRATIVE: CASE EVENT DATE: 20140604
